FAERS Safety Report 13334864 (Version 3)
Quarter: 2017Q2

REPORT INFORMATION
  Report Type: Report from Study
  Country: US (occurrence: US)
  Receive Date: 20170314
  Receipt Date: 20170526
  Transmission Date: 20170830
  Serious: Yes (Death)
  Sender: FDA-Public Use
  Company Number: PHEH2017US007399

PATIENT
  Age: 85 Year
  Sex: Male
  Weight: 157 kg

DRUGS (1)
  1. ENTRESTO [Suspect]
     Active Substance: SACUBITRIL\VALSARTAN
     Indication: PRODUCT USED FOR UNKNOWN INDICATION
     Dosage: 200 MG, UNK
     Route: 048
     Dates: start: 20150731

REACTIONS (2)
  - Osteomyelitis [Fatal]
  - Sepsis [Fatal]

NARRATIVE: CASE EVENT DATE: 20170107
